FAERS Safety Report 13090443 (Version 13)
Quarter: 2018Q2

REPORT INFORMATION
  Report Type: Report from Study
  Country: US (occurrence: US)
  Receive Date: 20170105
  Receipt Date: 20180403
  Transmission Date: 20180711
  Serious: Yes (Death, Hospitalization, Other)
  Sender: FDA-Public Use
  Company Number: US-ACTELION-A-US2016-139097

PATIENT
  Age: 56 Year
  Sex: Female
  Weight: 46.71 kg

DRUGS (16)
  1. SILDENAFIL. [Concomitant]
     Active Substance: SILDENAFIL
     Dosage: 80 MG, TID
  2. COMBIVENT [Concomitant]
     Active Substance: ALBUTEROL SULFATE\IPRATROPIUM BROMIDE
     Dosage: UNK, PRN
     Route: 045
  3. VELETRI [Suspect]
     Active Substance: EPOPROSTENOL
     Dosage: 30 NG/KG, PER MIN
     Route: 042
     Dates: end: 20180327
  4. PRAMIPEXOLE. [Concomitant]
     Active Substance: PRAMIPEXOLE
     Dosage: 0.5 MG, QPM
  5. ASA [Concomitant]
     Active Substance: ASPIRIN
     Dosage: 81 MG, QD
  6. POTASSIUM CHLORIDE. [Concomitant]
     Active Substance: POTASSIUM CHLORIDE
     Dosage: 10 MCG, QD
  7. METOPROLOL. [Concomitant]
     Active Substance: METOPROLOL
     Dosage: 25 MG, BID
  8. VELETRI [Suspect]
     Active Substance: EPOPROSTENOL
     Indication: PULMONARY ARTERIAL HYPERTENSION
     Dosage: 17 NG/KG, PER MIN
     Route: 042
     Dates: start: 20160705
  9. VELETRI [Suspect]
     Active Substance: EPOPROSTENOL
     Dosage: 19 NG/KG, PER MIN
     Route: 042
     Dates: start: 20160705
  10. MIRALAX [Concomitant]
     Active Substance: POLYETHYLENE GLYCOL 3350
  11. ALDACTONE [Concomitant]
     Active Substance: SPIRONOLACTONE
     Dosage: 50 MG, QD
  12. FERROUS SULFATE. [Concomitant]
     Active Substance: FERROUS SULFATE
     Dosage: UNK MG, BID
  13. TREPROSTINIL DIOLAMIN [Suspect]
     Active Substance: TREPROSTINIL DIOLAMINE
     Indication: PULMONARY ARTERIAL HYPERTENSION
     Dosage: 0.5 MG, TID
     Route: 048
     Dates: start: 20160406
  14. PROTONIX [Concomitant]
     Active Substance: PANTOPRAZOLE SODIUM
     Dosage: 40 MG, UNK
  15. CHANTIX [Suspect]
     Active Substance: VARENICLINE TARTRATE
     Indication: PRODUCT USED FOR UNKNOWN INDICATION
     Route: 065
  16. BUMETANIDE. [Concomitant]
     Active Substance: BUMETANIDE
     Dosage: 2 MG, BID

REACTIONS (47)
  - Ascites [Unknown]
  - Paracentesis [Unknown]
  - Dyspnoea [Unknown]
  - Pain in jaw [Unknown]
  - Gastrointestinal disorder [Unknown]
  - Suffocation feeling [Fatal]
  - Fluid retention [Unknown]
  - Body mass index decreased [Unknown]
  - Musculoskeletal stiffness [Unknown]
  - Flatulence [Unknown]
  - Anaemia [Unknown]
  - Abdominal distension [Unknown]
  - Chest discomfort [Unknown]
  - Device use error [Unknown]
  - Nausea [Unknown]
  - Musculoskeletal chest pain [Unknown]
  - Pneumonia [Fatal]
  - Aspiration pleural cavity [Unknown]
  - Flushing [Unknown]
  - Upper limb fracture [Unknown]
  - Gastric disorder [Unknown]
  - Nasal congestion [Unknown]
  - Disease progression [Fatal]
  - Proctocolectomy [Unknown]
  - Respiratory failure [Unknown]
  - Diarrhoea [Unknown]
  - Peripheral swelling [Unknown]
  - Localised oedema [Unknown]
  - Pulmonary arterial hypertension [Fatal]
  - Pulmonary hypertension [Unknown]
  - Malaise [Unknown]
  - Gait disturbance [Unknown]
  - Multiple allergies [Unknown]
  - Sinus congestion [Unknown]
  - Constipation [Unknown]
  - Headache [Unknown]
  - Joint range of motion decreased [Unknown]
  - Rectal prolapse [Unknown]
  - Mucous stools [Unknown]
  - Wheezing [Unknown]
  - Dysgeusia [Unknown]
  - Weight decreased [Unknown]
  - Eating disorder [Unknown]
  - Exposure to mould [Unknown]
  - Pulmonary oedema [Unknown]
  - Decreased appetite [Unknown]
  - Dyspnoea exertional [Unknown]
